FAERS Safety Report 9644887 (Version 1)
Quarter: 2013Q4

REPORT INFORMATION
  Report Type: Spontaneous
  Country: HU (occurrence: HU)
  Receive Date: 20131025
  Receipt Date: 20131025
  Transmission Date: 20140711
  Serious: Yes (Death, Other)
  Sender: FDA-Public Use
  Company Number: HU-AMGEN-HUNSP2013075107

PATIENT
  Age: 73 Year
  Sex: Male

DRUGS (1)
  1. ENBREL [Suspect]
     Indication: PSORIASIS
     Dosage: UNK
     Route: 065
     Dates: start: 201007

REACTIONS (7)
  - Death [Fatal]
  - Atrial fibrillation [Unknown]
  - Pulmonary embolism [Unknown]
  - Pancreatic neoplasm [Unknown]
  - Lung neoplasm [Unknown]
  - Brain neoplasm [Unknown]
  - Anaemia [Unknown]
